FAERS Safety Report 8590189-5 (Version None)
Quarter: 2012Q3

REPORT INFORMATION
  Report Type: 
  Country: None (occurrence: None)
  Receive Date: 20120813
  Receipt Date: 19910118
  Transmission Date: 20120928
  Serious: Yes (Other)
  Sender: FDA-Public Use
  Company Number: US-ROCHE-1100440

PATIENT
  Sex: Male

DRUGS (8)
  1. MORPHINE SULFATE [Concomitant]
     Route: 042
  2. LIDOCAINE [Concomitant]
     Route: 040
  3. MORPHINE SULFATE [Concomitant]
     Route: 042
  4. ACTIVASE [Suspect]
     Dosage: 50 CC
  5. NITROGLYCERIN [Concomitant]
     Route: 060
  6. NITROGLYCERIN [Concomitant]
     Route: 060
  7. ACTIVASE [Suspect]
     Indication: ACUTE MYOCARDIAL INFARCTION
     Route: 040
  8. LIDOCAINE [Concomitant]

REACTIONS (1)
  - PAIN IN EXTREMITY [None]
